FAERS Safety Report 9677541 (Version 2)
Quarter: 2014Q1

REPORT INFORMATION
  Report Type: Spontaneous
  Country: US (occurrence: US)
  Receive Date: 20131108
  Receipt Date: 20140211
  Transmission Date: 20141002
  Serious: Yes (Hospitalization)
  Sender: FDA-Public Use
  Company Number: US-ELI_LILLY_AND_COMPANY-US201310010282

PATIENT
  Age: 59 Year
  Sex: Male

DRUGS (10)
  1. EFFIENT [Suspect]
     Indication: STENT PLACEMENT
     Dosage: 10 MG, QD
     Route: 048
     Dates: start: 201304
  2. EFFIENT [Suspect]
     Indication: MYOCARDIAL INFARCTION
  3. EFFIENT [Suspect]
     Indication: CORONARY ARTERY DISEASE
  4. ATORVASTATIN [Concomitant]
     Dosage: 80 MG, UNK
     Route: 065
  5. COREG [Concomitant]
     Dosage: 12.5 MG, BID
  6. ISOSORBIDE [Concomitant]
     Dosage: 30 MG, QD
     Route: 065
  7. LISINOPRIL [Concomitant]
     Dosage: 10 MG, QD
     Route: 065
  8. LOVAZA [Concomitant]
     Dosage: 1 G, UNK
     Route: 048
  9. NIASPAN [Concomitant]
     Dosage: 500 MG, UNK
     Route: 065
  10. NITROGLYCERIN [Concomitant]
     Dosage: UNK, PRN
     Route: 060

REACTIONS (8)
  - Spinal fracture [Recovering/Resolving]
  - Fall [Recovering/Resolving]
  - Hypoaesthesia [Unknown]
  - Polyarthritis [Unknown]
  - Sciatica [Unknown]
  - Back pain [Not Recovered/Not Resolved]
  - Mobility decreased [Unknown]
  - Gait disturbance [Unknown]
